FAERS Safety Report 10592233 (Version 2)
Quarter: 2014Q4

REPORT INFORMATION
  Report Type: Spontaneous
  Country: US (occurrence: US)
  Receive Date: 20141119
  Receipt Date: 20141126
  Transmission Date: 20150529
  Serious: No
  Sender: FDA-Public Use
  Company Number: US-BIOGENIDEC-2014BI119195

PATIENT
  Age: 59 Year
  Sex: Female

DRUGS (22)
  1. TECFIDERA [Suspect]
     Active Substance: DIMETHYL FUMARATE
     Indication: MULTIPLE SCLEROSIS
     Route: 048
     Dates: start: 20140527
  2. CLONAZEPAM. [Concomitant]
     Active Substance: CLONAZEPAM
  3. IBUPROFEN. [Concomitant]
     Active Substance: IBUPROFEN
  4. LORATIDINE [Concomitant]
     Active Substance: LORATADINE
  5. OCUVITE [Concomitant]
     Active Substance: VITAMINS
  6. CALCIUM [Concomitant]
     Active Substance: CALCIUM
  7. IMODIUM MULTI-SYMPTOM RELIEF [Concomitant]
     Active Substance: DIMETHICONE\LOPERAMIDE HYDROCHLORIDE
  8. ZOVIRAX [Concomitant]
     Active Substance: ACYCLOVIR
  9. OXYBUTYNIN CHLORIDE ER [Concomitant]
  10. PROLIA [Concomitant]
     Active Substance: DENOSUMAB
  11. BACLOFEN. [Concomitant]
     Active Substance: BACLOFEN
  12. NEXIUM [Concomitant]
     Active Substance: ESOMEPRAZOLE MAGNESIUM
  13. STOOL SOFTENER [Concomitant]
     Active Substance: DOCUSATE CALCIUM
  14. PROBIOTIC [Concomitant]
     Active Substance: PROBIOTICS NOS
  15. ACYCLOVIR. [Concomitant]
     Active Substance: ACYCLOVIR
  16. CYMBALTA [Concomitant]
     Active Substance: DULOXETINE HYDROCHLORIDE
  17. GABAPENTIN. [Concomitant]
     Active Substance: GABAPENTIN
  18. BUPROPION HCL [Concomitant]
     Active Substance: BUPROPION HYDROCHLORIDE
  19. XANAX [Concomitant]
     Active Substance: ALPRAZOLAM
  20. AMANTADINE HCL [Concomitant]
     Active Substance: AMANTADINE HYDROCHLORIDE
  21. CYCLOSPORINE. [Concomitant]
     Active Substance: CYCLOSPORINE
  22. LEVOTHYROXINE SODIUM. [Concomitant]
     Active Substance: LEVOTHYROXINE SODIUM

REACTIONS (2)
  - Abdominal pain [Unknown]
  - Urinary tract infection [Not Recovered/Not Resolved]
